FAERS Safety Report 8732651 (Version 4)
Quarter: 2013Q3

REPORT INFORMATION
  Report Type: Spontaneous
  Country: BR (occurrence: BR)
  Receive Date: 20120820
  Receipt Date: 20130717
  Transmission Date: 20140515
  Serious: Yes (Other)
  Sender: FDA-Public Use
  Company Number: BR-ROCHE-1102114

PATIENT
  Age: 15 Year
  Sex: Male
  Weight: 67 kg

DRUGS (2)
  1. ROACUTAN [Suspect]
     Indication: ACNE
     Route: 048
     Dates: start: 201205
  2. ROACUTAN [Suspect]
     Route: 048
     Dates: end: 20120719

REACTIONS (8)
  - Sepsis [Unknown]
  - Pulmonary calcification [Unknown]
  - Erythema nodosum [Recovered/Resolved]
  - Platelet count abnormal [Unknown]
  - Scar [Not Recovered/Not Resolved]
  - Gamma-glutamyltransferase increased [Recovered/Resolved]
  - Acne [Unknown]
  - Skin disorder [Not Recovered/Not Resolved]
